FAERS Safety Report 13663164 (Version 2)
Quarter: 2017Q3

REPORT INFORMATION
  Report Type: Report from Study
  Country: CA (occurrence: CA)
  Receive Date: 20170619
  Receipt Date: 20170704
  Transmission Date: 20171127
  Serious: Yes (Other)
  Sender: FDA-Public Use
  Company Number: CA-ROCHE-1849879

PATIENT
  Age: 54 Year
  Sex: Female

DRUGS (3)
  1. ACTEMRA [Suspect]
     Active Substance: TOCILIZUMAB
     Indication: RHEUMATOID ARTHRITIS
     Route: 042
     Dates: start: 20161101, end: 20170602
  2. VENTOLIN [Concomitant]
     Active Substance: ALBUTEROL SULFATE
  3. FLOVENT [Concomitant]
     Active Substance: FLUTICASONE PROPIONATE

REACTIONS (12)
  - Diarrhoea [Not Recovered/Not Resolved]
  - Eczema [Recovering/Resolving]
  - Blood pressure systolic increased [Unknown]
  - Nasopharyngitis [Not Recovered/Not Resolved]
  - Malabsorption [Unknown]
  - Dyspnoea [Not Recovered/Not Resolved]
  - Blood pressure diastolic increased [Unknown]
  - Seasonal allergy [Unknown]
  - Fatigue [Unknown]
  - Haemolytic anaemia [Unknown]
  - Headache [Recovered/Resolved]
  - Red blood cell count decreased [Not Recovered/Not Resolved]

NARRATIVE: CASE EVENT DATE: 20161101
